FAERS Safety Report 13779406 (Version 1)
Quarter: 2017Q3

REPORT INFORMATION
  Report Type: Report from Study
  Country: US (occurrence: US)
  Receive Date: 20170721
  Receipt Date: 20170721
  Transmission Date: 20171127
  Serious: Yes (Death)
  Sender: FDA-Public Use
  Company Number: US-EXELIXIS-CABO-17009877

PATIENT
  Age: 64 Year
  Sex: Male
  Weight: 81.63 kg

DRUGS (22)
  1. CABOMETYX [Suspect]
     Active Substance: CABOZANTINIB S-MALATE
     Indication: RENAL CELL CARCINOMA
     Dosage: 60 MG, QD
     Route: 048
     Dates: start: 201704
  2. CLONAZEPAM. [Concomitant]
     Active Substance: CLONAZEPAM
  3. TRANSDERM SCOP [Concomitant]
     Active Substance: SCOPOLAMINE
  4. SUPHEDRINE [Concomitant]
     Active Substance: PSEUDOEPHEDRINE HYDROCHLORIDE
  5. AMLODIPINE [Concomitant]
     Active Substance: AMLODIPINE BESYLATE
  6. ENOXAPARIN [Concomitant]
     Active Substance: ENOXAPARIN
  7. CIPROFLOXACIN. [Concomitant]
     Active Substance: CIPROFLOXACIN
  8. COLACE [Concomitant]
     Active Substance: DOCUSATE SODIUM
  9. IFEREX [Concomitant]
  10. LEVOTHYROXINE. [Concomitant]
     Active Substance: LEVOTHYROXINE
  11. PROCHLORPERAZINE. [Concomitant]
     Active Substance: PROCHLORPERAZINE
  12. PANTOPRAZOLE [Concomitant]
     Active Substance: PANTOPRAZOLE
  13. METOCLOPRAMIDE. [Concomitant]
     Active Substance: METOCLOPRAMIDE
  14. PROMETHAZINE [Concomitant]
     Active Substance: PROMETHAZINE\PROMETHAZINE HYDROCHLORIDE
  15. METRONIDAZOLE. [Concomitant]
     Active Substance: METRONIDAZOLE
  16. ONDANSETRON [Concomitant]
     Active Substance: ONDANSETRON
  17. SIMVASTATIN. [Concomitant]
     Active Substance: SIMVASTATIN
  18. BENZONATATE. [Concomitant]
     Active Substance: BENZONATATE
  19. VOTRIENT [Concomitant]
     Active Substance: PAZOPANIB HYDROCHLORIDE
  20. GAS-X [Concomitant]
     Active Substance: DIMETHICONE
  21. MORPHINE [Concomitant]
     Active Substance: MORPHINE
  22. TRIAMTERENE AND HYDROCHLOROTHIAZIDE [Concomitant]
     Active Substance: HYDROCHLOROTHIAZIDE\TRIAMTERENE

REACTIONS (1)
  - Death [Fatal]

NARRATIVE: CASE EVENT DATE: 20170513
